FAERS Safety Report 6377596-6 (Version None)
Quarter: 2009Q3

REPORT INFORMATION
  Report Type: 
  Country: None (occurrence: None)
  Receive Date: 20090923
  Receipt Date: 20090923
  Transmission Date: 20100115
  Serious: Yes (Life-Threatening)
  Sender: FDA-Public Use
  Company Number: None

PATIENT
  Age: 1 Day
  Sex: Male
  Weight: 1.5 kg

DRUGS (5)
  1. MORPHINE [Suspect]
     Indication: PROCEDURAL PAIN
     Dosage: 0.3 MG IV
     Route: 042
     Dates: start: 20081113
  2. FENTANYL-100 [Suspect]
     Dosage: 1.5 MCG IV
     Route: 042
     Dates: start: 20081112
  3. AMPICILLIN [Concomitant]
  4. GENTAMICIN [Concomitant]
  5. TPN [Concomitant]

REACTIONS (2)
  - RESPIRATORY DISORDER NEONATAL [None]
  - RESPIRATORY RATE INCREASED [None]
